FAERS Safety Report 6568908-9 (Version None)
Quarter: 2010Q1

REPORT INFORMATION
  Report Type: 
  Country: None (occurrence: None)
  Receive Date: 20100203
  Receipt Date: 20100127
  Transmission Date: 20100710
  Serious: Yes (Other)
  Sender: FDA-Public Use
  Company Number: US-PURDUE-USA-2010-0041899

PATIENT
  Sex: Male

DRUGS (3)
  1. OXYCONTIN [Suspect]
     Indication: PROCEDURAL PAIN
     Dosage: 10 MG, Q12H
     Dates: start: 20091222, end: 20091228
  2. PERCOCET [Suspect]
     Indication: PROCEDURAL PAIN
     Dosage: 1 TABLET, Q4- 6H
     Dates: start: 20091222, end: 20091228
  3. ULTRAM [Concomitant]
     Indication: MIGRAINE
     Dosage: 50 MG, DAILY
     Dates: start: 20081201, end: 20091228

REACTIONS (6)
  - AMNESIA [None]
  - CYANOSIS [None]
  - DRUG HYPERSENSITIVITY [None]
  - HYPOVENTILATION [None]
  - MIOSIS [None]
  - RESPIRATORY ARREST [None]
